FAERS Safety Report 25891036 (Version 1)
Quarter: 2025Q4

REPORT INFORMATION
  Report Type: Spontaneous
  Country: US (occurrence: None)
  Receive Date: 20251007
  Receipt Date: 20251007
  Transmission Date: 20260118
  Serious: No
  Sender: FDA-CTU
  Company Number: None

PATIENT

DRUGS (1)
  1. BIMATOPROST [Suspect]
     Active Substance: BIMATOPROST

REACTIONS (5)
  - Dry eye [None]
  - Visual impairment [None]
  - Eye pain [None]
  - Eye pruritus [None]
  - Superficial injury of eye [None]
